FAERS Safety Report 15500666 (Version 1)
Quarter: 2018Q4

REPORT INFORMATION
  Report Type: Spontaneous
  Country: HR (occurrence: HR)
  Receive Date: 20181015
  Receipt Date: 20181015
  Transmission Date: 20190205
  Serious: Yes (Other)
  Sender: FDA-Public Use
  Company Number: HR-AMGEN-HRVSP2018141705

PATIENT
  Sex: Male

DRUGS (13)
  1. PANITUMUMAB [Suspect]
     Active Substance: PANITUMUMAB
     Indication: ADENOCARCINOMA OF COLON
     Dosage: UNK
     Route: 065
     Dates: start: 2015, end: 2015
  2. PANITUMUMAB [Suspect]
     Active Substance: PANITUMUMAB
     Indication: METASTASES TO ADRENALS
     Dosage: UNK
     Route: 065
     Dates: start: 2016, end: 2016
  3. FOLINIC ACID [Concomitant]
     Active Substance: LEUCOVORIN
     Indication: ADENOCARCINOMA OF COLON
     Dosage: UNK
     Dates: start: 20150424, end: 20170120
  4. IRINOTECAN [Concomitant]
     Active Substance: IRINOTECAN
     Indication: METASTASES TO LIVER
  5. PANITUMUMAB [Suspect]
     Active Substance: PANITUMUMAB
     Indication: METASTASES TO LIVER
     Dosage: UNK
     Route: 065
     Dates: end: 201605
  6. 5 FU [Concomitant]
     Active Substance: FLUOROURACIL
     Indication: METASTASES TO LIVER
  7. FOLINIC ACID [Concomitant]
     Active Substance: LEUCOVORIN
     Indication: METASTASES TO LIVER
  8. 5 FU [Concomitant]
     Active Substance: FLUOROURACIL
     Indication: ADENOCARCINOMA OF COLON
     Dosage: UNK
     Dates: start: 20150424, end: 20170120
  9. 5 FU [Concomitant]
     Active Substance: FLUOROURACIL
     Indication: METASTASES TO ADRENALS
  10. FOLINIC ACID [Concomitant]
     Active Substance: LEUCOVORIN
     Indication: METASTASES TO ADRENALS
  11. IRINOTECAN [Concomitant]
     Active Substance: IRINOTECAN
     Indication: ADENOCARCINOMA OF COLON
     Dosage: UNK
     Dates: start: 20150424, end: 20170120
  12. PANITUMUMAB [Suspect]
     Active Substance: PANITUMUMAB
     Dosage: UNK (DOSE REDUCED BY 20 PERCENT)
     Route: 065
     Dates: start: 2016, end: 20170120
  13. IRINOTECAN [Concomitant]
     Active Substance: IRINOTECAN
     Indication: METASTASES TO ADRENALS

REACTIONS (6)
  - Adenocarcinoma of colon [Unknown]
  - Skin disorder [Unknown]
  - Rash pruritic [Unknown]
  - Dermatitis acneiform [Unknown]
  - Pruritus generalised [Unknown]
  - Refusal of treatment by patient [Unknown]

NARRATIVE: CASE EVENT DATE: 2015
